FAERS Safety Report 10078704 (Version 2)
Quarter: 2014Q2

REPORT INFORMATION
  Report Type: Spontaneous
  Country: US (occurrence: US)
  Receive Date: 20140415
  Receipt Date: 20140521
  Transmission Date: 20141212
  Serious: No
  Sender: FDA-Public Use
  Company Number: US-009507513-1404USA008006

PATIENT
  Sex: Female

DRUGS (1)
  1. CLARITIN LIQUIGELS [Suspect]
     Indication: HYPERSENSITIVITY
     Dosage: 10 MG, QD
     Route: 048
     Dates: start: 201402, end: 201403

REACTIONS (1)
  - Drug ineffective [Unknown]
